FAERS Safety Report 9524387 (Version 2)
Quarter: 2014Q1

REPORT INFORMATION
  Report Type: Spontaneous
  Country: US (occurrence: None)
  Receive Date: 20130305
  Receipt Date: 20140306
  Transmission Date: 20141002
  Serious: Yes (Hospitalization, Other)
  Sender: FDA-Public Use
  Company Number: 163-21880-12022176

PATIENT
  Age: 67 Year
  Sex: Female

DRUGS (10)
  1. REVLIMID [Suspect]
     Indication: PLASMA CELL MYELOMA
     Dosage: 25 MG,  1 IN 1 D,  PO
     Route: 048
     Dates: start: 200911
  2. SYNTHROID (LEVOTHYROXINE SODIUM) [Concomitant]
  3. LIPITOR (ATORVASTATIN) [Concomitant]
  4. PLAVIX (CLOPIDOGREL SULFATE) [Concomitant]
  5. OMEPRAZOLE (OMEPRAZOLE) [Concomitant]
  6. AMLODIPINE (AMLODIPINE) [Concomitant]
  7. GABAPENTIN (GABAPENTIN) [Concomitant]
  8. METOPROLOL (METOPROLOL) [Concomitant]
  9. ZYRTEC (CETIRIZINE HYDROCHLORIDE) [Concomitant]
  10. LIVALO (ITAVASTATIN CALCIUM) [Concomitant]

REACTIONS (2)
  - Pneumonia [None]
  - Pyrexia [None]
